FAERS Safety Report 24214389 (Version 4)
Quarter: 2025Q1

REPORT INFORMATION
  Report Type: Report from Study
  Country: US (occurrence: US)
  Receive Date: 20240815
  Receipt Date: 20250204
  Transmission Date: 20250409
  Serious: Yes (Other)
  Sender: TAKEDA
  Company Number: US-TAKEDA-2024TUS071978

PATIENT
  Age: 44 Year
  Sex: Male

DRUGS (2)
  1. BRIGATINIB [Suspect]
     Active Substance: BRIGATINIB
     Indication: Lung neoplasm malignant
     Dosage: 180 MILLIGRAM, QD
     Dates: start: 202403
  2. BRIGATINIB [Suspect]
     Active Substance: BRIGATINIB
     Dosage: 180 MILLIGRAM, QD

REACTIONS (8)
  - Diabetes mellitus [Unknown]
  - Product after taste [Unknown]
  - Blood cholesterol increased [Unknown]
  - Constipation [Unknown]
  - Blood pressure increased [Unknown]
  - Vomiting [Unknown]
  - Nausea [Unknown]
  - Product dose omission issue [Recovered/Resolved]

NARRATIVE: CASE EVENT DATE: 20240706
